FAERS Safety Report 9160605 (Version 1)
Quarter: 2013Q1

REPORT INFORMATION
  Report Type: Spontaneous
  Country: FR (occurrence: None)
  Receive Date: 20130219
  Receipt Date: 20130219
  Transmission Date: 20140127
  Serious: Yes (Hospitalization)
  Sender: FDA-Public Use
  Company Number: DKLU1088878

PATIENT
  Age: 6 Year
  Sex: Female

DRUGS (5)
  1. ONFI [Suspect]
     Route: 048
     Dates: end: 20121219
  2. DEPAKINE [Suspect]
     Route: 048
     Dates: end: 20121219
  3. EPITOMAX [Suspect]
     Route: 048
     Dates: end: 201205
  4. DIACOMIT [Suspect]
     Route: 048
     Dates: end: 20121219
  5. PARACETAMOL (PARACETAMOL) [Suspect]
     Route: 048
     Dates: start: 201212, end: 20121219

REACTIONS (8)
  - General physical health deterioration [None]
  - Cough [None]
  - Asthenia [None]
  - Pyrexia [None]
  - Inflammation [None]
  - Aspartate aminotransferase increased [None]
  - Alanine aminotransferase increased [None]
  - Gamma-glutamyltransferase increased [None]
